FAERS Safety Report 8265150-0 (Version None)
Quarter: 2012Q2

REPORT INFORMATION
  Report Type: 
  Country: None (occurrence: None)
  Receive Date: 20120403
  Receipt Date: 20120323
  Transmission Date: 20120825
  Serious: Yes (Hospitalization, Other)
  Sender: FDA-Public Use
  Company Number: 2012SP016261

PATIENT
  Age: 35 Year
  Sex: Male

DRUGS (1)
  1. REMERON [Suspect]
     Indication: PRODUCT USED FOR UNKNOWN INDICATION
     Dosage: ONCE; PO
     Route: 048
     Dates: start: 20110219, end: 20110219

REACTIONS (8)
  - INCORRECT DOSE ADMINISTERED [None]
  - VOMITING [None]
  - SUICIDE ATTEMPT [None]
  - POISONING [None]
  - SOMNOLENCE [None]
  - PULMONARY INFARCTION [None]
  - ALCOHOL USE [None]
  - ELECTROCARDIOGRAM QT PROLONGED [None]
